FAERS Safety Report 6888226-9 (Version None)
Quarter: 2010Q3

REPORT INFORMATION
  Report Type: 
  Country: None (occurrence: None)
  Receive Date: 20100730
  Receipt Date: 20100722
  Transmission Date: 20110219
  Serious: Yes (Hospitalization, Other)
  Sender: FDA-Public Use
  Company Number: GXKR2010ES08159

PATIENT
  Age: 68 Year
  Sex: Male

DRUGS (2)
  1. OMEPRAZOLE [Suspect]
     Dosage: UNK
     Route: 065
     Dates: start: 20080101
  2. LANSOPRAZOLE [Concomitant]
     Dosage: DAILY
     Route: 048

REACTIONS (11)
  - CARDIO-RESPIRATORY ARREST [None]
  - CARDIOVERSION [None]
  - DIZZINESS [None]
  - ENDOTRACHEAL INTUBATION [None]
  - ERYTHEMA [None]
  - HYPERHIDROSIS [None]
  - KOUNIS SYNDROME [None]
  - LOSS OF CONSCIOUSNESS [None]
  - MECHANICAL VENTILATION [None]
  - PRURITUS [None]
  - VENTRICULAR FIBRILLATION [None]
